FAERS Safety Report 6476420-0 (Version None)
Quarter: 2009Q4

REPORT INFORMATION
  Report Type: 
  Country: None (occurrence: None)
  Receive Date: 20091207
  Receipt Date: 20091127
  Transmission Date: 20100525
  Serious: Yes (Hospitalization)
  Sender: FDA-Public Use
  Company Number: US-BIOGENIDEC-2009BI033335

PATIENT
  Sex: Male

DRUGS (4)
  1. TYSABRI [Suspect]
     Indication: MULTIPLE SCLEROSIS
     Route: 042
     Dates: start: 20081008, end: 20090824
  2. DITROPAN XL [Concomitant]
     Indication: NEUROGENIC BLADDER
  3. ZANAFLEX [Concomitant]
  4. LAMICTAL [Concomitant]

REACTIONS (4)
  - BLOOD POTASSIUM DECREASED [None]
  - CLOSTRIDIUM DIFFICILE COLITIS [None]
  - HYPOTENSION [None]
  - URINARY TRACT INFECTION [None]
